FAERS Safety Report 8790028 (Version 5)
Quarter: 2014Q1

REPORT INFORMATION
  Report Type: Report from Study
  Country: JP (occurrence: JP)
  Receive Date: 20120917
  Receipt Date: 20140122
  Transmission Date: 20141002
  Serious: Yes (Hospitalization, Other)
  Sender: FDA-Public Use
  Company Number: JP-VERTEX PHARMACEUTICAL INC.-AE-2012-007858

PATIENT
  Age: 70 Year
  Sex: Male

DRUGS (9)
  1. VX-950 (TELAPREVIR) [Suspect]
     Indication: CHRONIC HEPATITIS C
     Dosage: 1500 MG, QD
     Route: 048
     Dates: start: 20120518, end: 20120521
  2. VX-950 (TELAPREVIR) [Suspect]
     Dosage: 750 MG, QD
     Route: 048
     Dates: start: 20120526, end: 20120728
  3. PEGINTERFERON ALFA-2B [Suspect]
     Indication: CHRONIC HEPATITIS C
     Dosage: 1.5 ?G/KG, WEEKLY
     Route: 058
     Dates: start: 20120518, end: 20120607
  4. PEGINTERFERON ALFA-2B [Suspect]
     Dosage: 0.75 ?G/KG, WEEKLY
     Route: 058
     Dates: start: 20120615, end: 20120615
  5. PEGINTERFERON ALFA-2B [Suspect]
     Dosage: 1.5 ?G/KG, WEEKLY
     Route: 058
     Dates: start: 20120619, end: 20120728
  6. PEGINTERFERON ALFA-2B [Suspect]
     Dosage: 1.5 ?G/KG, WEEKLY
     Route: 058
     Dates: start: 20120814, end: 20121030
  7. REBETOL [Suspect]
     Indication: CHRONIC HEPATITIS C
     Dosage: 600 MG, QD
     Route: 048
     Dates: start: 20120518, end: 20120614
  8. REBETOL [Suspect]
     Dosage: 400 MG, QD
     Route: 048
     Dates: start: 20120615, end: 20120728
  9. REBETOL [Suspect]
     Dosage: 400 MG, QD
     Route: 048
     Dates: start: 20120814, end: 20121022

REACTIONS (5)
  - Blood urea increased [Recovered/Resolved]
  - Blood creatinine increased [Not Recovered/Not Resolved]
  - Blood uric acid increased [Recovered/Resolved]
  - Drug eruption [Recovered/Resolved]
  - Haemoglobin decreased [Recovered/Resolved]
